FAERS Safety Report 17377427 (Version 2)
Quarter: 2020Q4

REPORT INFORMATION
  Report Type: Spontaneous
  Country: US (occurrence: US)
  Receive Date: 20200206
  Receipt Date: 20201111
  Transmission Date: 20210113
  Serious: No
  Sender: FDA-Public Use
  Company Number: US-TEVA-2020-US-1177561

PATIENT
  Age: 70 Year
  Sex: Female

DRUGS (24)
  1. BUDESONIDE (INHALED) [Concomitant]
  2. PLAGERINE [Concomitant]
  3. RECLAST [Concomitant]
     Active Substance: ZOLEDRONIC ACID
  4. SYNTHROID [Concomitant]
     Active Substance: LEVOTHYROXINE SODIUM
  5. SINGULAIR [Concomitant]
     Active Substance: MONTELUKAST SODIUM
  6. BROVANA [Concomitant]
     Active Substance: ARFORMOTEROL TARTRATE
  7. DUONEB [Concomitant]
     Active Substance: ALBUTEROL SULFATE\IPRATROPIUM BROMIDE
  8. ATORVASTATIN [Concomitant]
     Active Substance: ATORVASTATIN
  9. NITROFURANTOIN. [Concomitant]
     Active Substance: NITROFURANTOIN
  10. XTANZA ER [Concomitant]
  11. AMBIEN [Concomitant]
     Active Substance: ZOLPIDEM TARTRATE
  12. MOVANTIK [Concomitant]
     Active Substance: NALOXEGOL OXALATE
  13. TOBRAMYCIN. [Suspect]
     Active Substance: TOBRAMYCIN
     Indication: PNEUMONIA PSEUDOMONAL
     Dosage: INHALATION SOLUTION
     Route: 065
     Dates: start: 20200113, end: 20200203
  14. PROVENTIL HFA [Concomitant]
     Active Substance: ALBUTEROL SULFATE
  15. CORTEF [Concomitant]
     Active Substance: HYDROCORTISONE
  16. PROTONIX [Concomitant]
     Active Substance: PANTOPRAZOLE SODIUM
  17. CYMBALTA [Concomitant]
     Active Substance: DULOXETINE HYDROCHLORIDE
  18. OXYCONTIN [Concomitant]
     Active Substance: OXYCODONE HYDROCHLORIDE
  19. SULFASALAZINE. [Concomitant]
     Active Substance: SULFASALAZINE
  20. GABAPENTIN. [Concomitant]
     Active Substance: GABAPENTIN
  21. PILOCARPINE. [Concomitant]
     Active Substance: PILOCARPINE
  22. PLAVIX [Concomitant]
     Active Substance: CLOPIDOGREL BISULFATE
  23. BACLOFEN. [Concomitant]
     Active Substance: BACLOFEN
  24. TOBRAMYCIN. [Suspect]
     Active Substance: TOBRAMYCIN
     Indication: ASTHMA
     Dosage: INHALATION SOLUTION
     Route: 065
     Dates: start: 20200117

REACTIONS (7)
  - Product use in unapproved indication [Unknown]
  - Oral discomfort [Unknown]
  - Patient dissatisfaction with treatment [Unknown]
  - Visual impairment [Recovered/Resolved with Sequelae]
  - Chromaturia [Unknown]
  - Product prescribing error [Unknown]
  - Wrong technique in product usage process [Unknown]

NARRATIVE: CASE EVENT DATE: 202001
